FAERS Safety Report 17099602 (Version 1)
Quarter: 2019Q4

REPORT INFORMATION
  Report Type: Spontaneous
  Country: US (occurrence: US)
  Receive Date: 20191130
  Receipt Date: 20191130
  Transmission Date: 20200122
  Serious: Yes (Life-Threatening)
  Sender: FDA-Public Use
  Company Number: None

PATIENT
  Sex: Female
  Weight: 51.26 kg

DRUGS (1)
  1. BOTOX [Suspect]
     Active Substance: ONABOTULINUMTOXINA

REACTIONS (12)
  - Dyspnoea [None]
  - Muscular weakness [None]
  - Hypoaesthesia [None]
  - Heart rate increased [None]
  - Facial pain [None]
  - Tinnitus [None]
  - Neck pain [None]
  - Myalgia [None]
  - Arthralgia [None]
  - Fatigue [None]
  - Back pain [None]
  - Vision blurred [None]

NARRATIVE: CASE EVENT DATE: 20160823
